FAERS Safety Report 5777077-4 (Version None)
Quarter: 2008Q2

REPORT INFORMATION
  Report Type: 
  Country: None (occurrence: None)
  Receive Date: 20080616
  Receipt Date: 20070613
  Transmission Date: 20081010
  Serious: Yes (Hospitalization)
  Sender: FDA-Public Use
  Company Number: 8025113

PATIENT
  Age: 77 Year
  Sex: Female

DRUGS (11)
  1. NIFEDIPINE [Suspect]
  2. ASPIRIN [Suspect]
  3. METAMIZOL /00039502/ [Suspect]
  4. BARBITURATE [Suspect]
  5. DOXEPIN HCL [Suspect]
  6. ENALAPRIL MALEATE [Suspect]
  7. FLUNITRAZEPAM [Suspect]
  8. LACTULOSE [Suspect]
  9. OMEPRAZOL /00661201/ [Suspect]
  10. VALERIAN PREPARATION [Suspect]
  11. VERAPAMIL [Suspect]

REACTIONS (4)
  - CONFUSIONAL STATE [None]
  - HYPOREFLEXIA [None]
  - SOMNOLENCE [None]
  - THERAPEUTIC AGENT TOXICITY [None]
